FAERS Safety Report 4709483-0 (Version None)
Quarter: 2005Q3

REPORT INFORMATION
  Report Type: 
  Country: None (occurrence: None)
  Receive Date: 20050705
  Receipt Date: 20050627
  Transmission Date: 20060218
  Serious: Yes (Hospitalization)
  Sender: FDA-Public Use
  Company Number: PERC20050030

PATIENT
  Age: 73 Year
  Sex: Male

DRUGS (4)
  1. PERCOCET [Suspect]
  2. FLEXERIL [Suspect]
     Indication: NECK PAIN
  3. MICARDIS (BLINDED) [Concomitant]
  4. COZAAR (BLINDED0 [Concomitant]

REACTIONS (4)
  - ANGIOPATHY [None]
  - CONFUSIONAL STATE [None]
  - INCORRECT DOSE ADMINISTERED [None]
  - PNEUMONIA [None]
